FAERS Safety Report 6118937-4 (Version None)
Quarter: 2009Q1

REPORT INFORMATION
  Report Type: 
  Country: None (occurrence: None)
  Receive Date: 20090316
  Receipt Date: 20090304
  Transmission Date: 20090719
  Serious: Yes (Hospitalization)
  Sender: FDA-Public Use
  Company Number: FR-ELI_LILLY_AND_COMPANY-FR200903001483

PATIENT
  Sex: Female

DRUGS (7)
  1. SOMATROPIN [Suspect]
     Indication: GROWTH HORMONE DEFICIENCY
     Dosage: 0.4 MG, DAILY (1/D)
     Dates: start: 20040910, end: 20060101
  2. HYDROCORTISONE [Concomitant]
     Dates: start: 19811001
  3. LEVOTHYROXINE SODIUM [Concomitant]
     Dates: start: 19811001
  4. FLUDROCORTISONE [Concomitant]
     Dates: start: 19910401
  5. LIPANTHYL [Concomitant]
     Dates: start: 19890301
  6. ASPEGIC 325 [Concomitant]
     Indication: PROPHYLAXIS
     Dates: start: 20070101
  7. SOTALOL [Concomitant]
     Indication: PROPHYLAXIS
     Dates: start: 20070101

REACTIONS (1)
  - POLYP [None]
